FAERS Safety Report 9115657 (Version 1)
Quarter: 2013Q1

REPORT INFORMATION
  Report Type: Report from Study
  Country: FR (occurrence: FR)
  Receive Date: 20130225
  Receipt Date: 20130225
  Transmission Date: 20140127
  Serious: Yes (Hospitalization)
  Sender: FDA-Public Use
  Company Number: FR-BAXTER-2013BAX006357

PATIENT
  Age: 59 Year
  Sex: Female
  Weight: 80 kg

DRUGS (9)
  1. ENDOXAN 2000 MG, LYOPHILISAT POUR SOLUTION INJECTABLE [Suspect]
     Indication: BREAST CANCER
     Route: 065
  2. PERTUZUMAB [Suspect]
     Indication: BREAST CANCER
     Route: 042
     Dates: start: 20121226
  3. PERTUZUMAB [Suspect]
     Route: 042
     Dates: start: 20130117
  4. TRASTUZUMAB [Suspect]
     Indication: BREAST CANCER
     Route: 042
     Dates: start: 20121226
  5. TRASTUZUMAB [Suspect]
     Route: 042
     Dates: start: 20130117
  6. DOCETAXEL [Suspect]
     Indication: BREAST CANCER
     Route: 042
     Dates: start: 20121226
  7. DOCETAXEL [Suspect]
     Route: 042
     Dates: start: 20130117, end: 20130207
  8. FLUOROURACIL [Suspect]
     Indication: BREAST CANCER
     Route: 042
  9. EPIRUBICIN [Suspect]
     Indication: BREAST CANCER
     Route: 042

REACTIONS (2)
  - SUNCT syndrome [Recovered/Resolved]
  - SUNCT syndrome [Recovered/Resolved]
